FAERS Safety Report 26067708 (Version 2)
Quarter: 2025Q4

REPORT INFORMATION
  Report Type: Report from Study
  Country: CN (occurrence: CN)
  Receive Date: 20251120
  Receipt Date: 20251125
  Transmission Date: 20260117
  Serious: Yes (Hospitalization, Other)
  Sender: ROCHE
  Company Number: CN-ROCHE-3522343

PATIENT
  Age: 72 Year
  Sex: Female
  Weight: 49 kg

DRUGS (94)
  1. ADO-TRASTUZUMAB EMTANSINE [Suspect]
     Active Substance: ADO-TRASTUZUMAB EMTANSINE
     Indication: HER2 positive breast cancer
     Dosage: DATE OF MOST RECENT DOSE OF MEDICINAL PRODUCT PRIOR TO AE ONSET WAS 10/JAN/2024, 04/FEB/2024, 06 FEB
     Route: 042
     Dates: start: 20231125
  2. TRASTUZUMAB [Concomitant]
     Active Substance: TRASTUZUMAB
     Dosage: FREQUENCY TEXT:ST
     Route: 042
     Dates: start: 20221129, end: 20221129
  3. TRASTUZUMAB [Concomitant]
     Active Substance: TRASTUZUMAB
     Dosage: FREQUENCY TEXT:ST
     Route: 042
     Dates: start: 20230110, end: 20230110
  4. CAPECITABINE [Concomitant]
     Active Substance: CAPECITABINE
     Route: 048
     Dates: start: 20231010
  5. CAPECITABINE [Concomitant]
     Active Substance: CAPECITABINE
     Route: 048
     Dates: start: 20231031, end: 202312
  6. CAPECITABINE [Concomitant]
     Active Substance: CAPECITABINE
     Route: 048
     Dates: start: 20231107, end: 202312
  7. CAPECITABINE [Concomitant]
     Active Substance: CAPECITABINE
     Route: 048
     Dates: start: 20231121
  8. MEGESTROL ACETATE DISPERSIBLE TABLETS [Concomitant]
     Route: 048
     Dates: start: 20230921, end: 20230930
  9. MEGESTROL ACETATE DISPERSIBLE TABLETS [Concomitant]
     Route: 048
     Dates: start: 20230523
  10. MEGESTROL ACETATE DISPERSIBLE TABLETS [Concomitant]
     Route: 048
     Dates: start: 20230620, end: 20230627
  11. MEGESTROL ACETATE DISPERSIBLE TABLETS [Concomitant]
     Route: 048
     Dates: start: 20240303, end: 20240305
  12. Human Granulocyte Stimulating Factor Injection [Concomitant]
     Indication: Leukopenia
     Dosage: FREQUENCY TEXT:ST
     Route: 058
     Dates: start: 20230921, end: 20230921
  13. Human Granulocyte Stimulating Factor Injection [Concomitant]
     Route: 058
     Dates: start: 20230925, end: 20230926
  14. Human Granulocyte Stimulating Factor Injection [Concomitant]
     Route: 058
     Dates: start: 20230929, end: 20230930
  15. Human Granulocyte Stimulating Factor Injection [Concomitant]
     Route: 058
     Dates: start: 20231217, end: 20231217
  16. DEXAMETHASONE PHOSPHATE [Concomitant]
     Active Substance: DEXAMETHASONE PHOSPHATE
     Indication: Hypersensitivity
     Dosage: FREQUENCY TEXT:ST
     Route: 042
     Dates: start: 20231225, end: 20231225
  17. DEXAMETHASONE PHOSPHATE [Concomitant]
     Active Substance: DEXAMETHASONE PHOSPHATE
     Dosage: FREQUENCY TEXT:ST
     Route: 042
     Dates: start: 20231215, end: 20231215
  18. DEXAMETHASONE PHOSPHATE [Concomitant]
     Active Substance: DEXAMETHASONE PHOSPHATE
     Dosage: FREQUENCY TEXT:ST
     Route: 042
     Dates: start: 20230922, end: 20230922
  19. DEXAMETHASONE PHOSPHATE [Concomitant]
     Active Substance: DEXAMETHASONE PHOSPHATE
     Dosage: FREQUENCY TEXT:ST
     Route: 042
     Dates: start: 20240228, end: 20240229
  20. DEXAMETHASONE PHOSPHATE [Concomitant]
     Active Substance: DEXAMETHASONE PHOSPHATE
     Dosage: FREQUENCY TEXT:ST
     Route: 042
     Dates: start: 20240229, end: 20240229
  21. DEXAMETHASONE PHOSPHATE [Concomitant]
     Active Substance: DEXAMETHASONE PHOSPHATE
     Route: 042
     Dates: start: 20231225, end: 20231225
  22. ZOLEDRONIC ACID CONCENTRATED SOLUTION FOR INJECTION [Concomitant]
     Indication: Myelosuppression
     Dosage: FREQUENCY TEXT:ST
     Route: 042
     Dates: start: 20221129, end: 20221129
  23. ZOLEDRONIC ACID CONCENTRATED SOLUTION FOR INJECTION [Concomitant]
     Dosage: FREQUENCY TEXT:ST
     Route: 042
     Dates: start: 20230110, end: 20230110
  24. ZOLEDRONIC ACID CONCENTRATED SOLUTION FOR INJECTION [Concomitant]
     Dosage: FREQUENCY TEXT:ST
     Route: 042
     Dates: start: 20230221, end: 20230221
  25. ZOLEDRONIC ACID CONCENTRATED SOLUTION FOR INJECTION [Concomitant]
     Dosage: FREQUENCY TEXT:ST
     Route: 042
     Dates: start: 20230314, end: 20230314
  26. ZOLEDRONIC ACID CONCENTRATED SOLUTION FOR INJECTION [Concomitant]
     Dosage: FREQUENCY TEXT:ST
     Route: 042
     Dates: start: 20230509, end: 20230509
  27. ZOLEDRONIC ACID CONCENTRATED SOLUTION FOR INJECTION [Concomitant]
     Dosage: FREQUENCY TEXT:ST
     Route: 042
     Dates: start: 20230725, end: 20230725
  28. ZOLEDRONIC ACID CONCENTRATED SOLUTION FOR INJECTION [Concomitant]
     Dosage: FREQUENCY TEXT:ST
     Route: 042
     Dates: start: 20230822, end: 20230822
  29. ZOLEDRONIC ACID CONCENTRATED SOLUTION FOR INJECTION [Concomitant]
     Dosage: FREQUENCY TEXT:ST
     Route: 042
     Dates: start: 20230919, end: 20230919
  30. ZOLEDRONIC ACID CONCENTRATED SOLUTION FOR INJECTION [Concomitant]
     Dosage: FREQUENCY TEXT:ST
     Route: 042
     Dates: start: 20230621, end: 20230621
  31. ZOLEDRONIC ACID CONCENTRATED SOLUTION FOR INJECTION [Concomitant]
     Dosage: FREQUENCY TEXT:ST
     Route: 042
     Dates: start: 20221129, end: 20221129
  32. ZOLEDRONIC ACID CONCENTRATED SOLUTION FOR INJECTION [Concomitant]
     Dosage: FREQUENCY TEXT:ST
     Route: 042
     Dates: start: 20221129, end: 20221129
  33. ZOLEDRONIC ACID CONCENTRATED SOLUTION FOR INJECTION [Concomitant]
     Dosage: FREQUENCY TEXT:ST
     Route: 042
     Dates: start: 20231224, end: 20231224
  34. LEVOFLOXACIN [Concomitant]
     Active Substance: LEVOFLOXACIN
     Indication: Entropion
     Dosage: DOSE 1 DROP, ROUTE OF ADMIN EYE DROPS
     Dates: start: 20221129
  35. LEVOFLOXACIN [Concomitant]
     Active Substance: LEVOFLOXACIN
     Indication: Conjunctivitis
     Dosage: DOSE 1 DROP, ROUTE OF ADMIN EYE DROPS
     Dates: start: 20230411
  36. LEVOFLOXACIN [Concomitant]
     Active Substance: LEVOFLOXACIN
     Dosage: DOSE 1 DROP, ROUTE OF ADMIN EYE DROPS
     Dates: start: 20230627, end: 20230627
  37. LOPERAMIDE HYDROCHLORIDE [Concomitant]
     Active Substance: LOPERAMIDE HYDROCHLORIDE
     Indication: Diarrhoea
     Route: 048
     Dates: start: 20230404, end: 20230410
  38. LOPERAMIDE HYDROCHLORIDE [Concomitant]
     Active Substance: LOPERAMIDE HYDROCHLORIDE
     Route: 048
     Dates: start: 20230822, end: 20230829
  39. LOPERAMIDE HYDROCHLORIDE [Concomitant]
     Active Substance: LOPERAMIDE HYDROCHLORIDE
     Route: 048
     Dates: start: 20230509, end: 20230514
  40. LOPERAMIDE HYDROCHLORIDE [Concomitant]
     Active Substance: LOPERAMIDE HYDROCHLORIDE
     Route: 048
     Dates: start: 20230620, end: 20230620
  41. LOPERAMIDE HYDROCHLORIDE [Concomitant]
     Active Substance: LOPERAMIDE HYDROCHLORIDE
     Route: 048
     Dates: start: 20230623, end: 20230623
  42. RITODRINE [Concomitant]
     Active Substance: RITODRINE
     Route: 048
     Dates: start: 20230509, end: 20230522
  43. RITODRINE [Concomitant]
     Active Substance: RITODRINE
     Route: 048
     Dates: start: 20230523, end: 20230607
  44. RITODRINE [Concomitant]
     Active Substance: RITODRINE
     Route: 048
     Dates: start: 20231031, end: 20231113
  45. RITODRINE [Concomitant]
     Active Substance: RITODRINE
     Route: 048
     Dates: start: 20231121, end: 20231205
  46. TOBRAMYCIN AND DEXAMETHASONE [Concomitant]
     Active Substance: DEXAMETHASONE\TOBRAMYCIN
     Dosage: DOSE 1 DROP, ROUTE OF ADMIN EYE DROPS
     Dates: start: 20230411
  47. OMEPRAZOLE SODIUM FOR INJECTION [Concomitant]
     Route: 042
     Dates: start: 20230919, end: 20230919
  48. OMEPRAZOLE SODIUM FOR INJECTION [Concomitant]
     Route: 042
     Dates: start: 20230623, end: 20230623
  49. OMEPRAZOLE SODIUM FOR INJECTION [Concomitant]
     Route: 042
     Dates: start: 20230624, end: 20230626
  50. ONDANSETRON HYDROCHLORIDE [Concomitant]
     Active Substance: ONDANSETRON HYDROCHLORIDE
     Dosage: FREQUENCY TEXT:ST
     Route: 042
     Dates: start: 20230919, end: 20230919
  51. Ricodrine [Concomitant]
     Route: 048
     Dates: start: 20230620, end: 20230627
  52. ASPIRIN ENTERIC COATED TABLETS [Concomitant]
     Route: 048
     Dates: start: 20230620, end: 20230627
  53. POTASSIUM CHLORIDE [Concomitant]
     Active Substance: POTASSIUM CHLORIDE
     Route: 042
     Dates: start: 20230624, end: 20230624
  54. POTASSIUM CHLORIDE [Concomitant]
     Active Substance: POTASSIUM CHLORIDE
     Route: 042
     Dates: start: 20230623, end: 20230626
  55. POTASSIUM CHLORIDE [Concomitant]
     Active Substance: POTASSIUM CHLORIDE
     Route: 042
     Dates: start: 20230921, end: 20230928
  56. POTASSIUM CHLORIDE [Concomitant]
     Active Substance: POTASSIUM CHLORIDE
     Route: 048
     Dates: start: 20230624, end: 20230627
  57. POTASSIUM CHLORIDE [Concomitant]
     Active Substance: POTASSIUM CHLORIDE
     Route: 042
     Dates: start: 20230623, end: 20230623
  58. POTASSIUM CHLORIDE [Concomitant]
     Active Substance: POTASSIUM CHLORIDE
     Route: 042
     Dates: start: 20231119, end: 20231124
  59. POTASSIUM CHLORIDE [Concomitant]
     Active Substance: POTASSIUM CHLORIDE
     Route: 042
     Dates: start: 20240110, end: 20240112
  60. POTASSIUM CHLORIDE [Concomitant]
     Active Substance: POTASSIUM CHLORIDE
     Route: 042
     Dates: start: 20240206, end: 20240207
  61. POTASSIUM CHLORIDE [Concomitant]
     Active Substance: POTASSIUM CHLORIDE
     Route: 042
     Dates: start: 20231125, end: 20231126
  62. POTASSIUM CHLORIDE [Concomitant]
     Active Substance: POTASSIUM CHLORIDE
     Route: 042
     Dates: start: 20240229, end: 20240301
  63. POTASSIUM CHLORIDE [Concomitant]
     Active Substance: POTASSIUM CHLORIDE
     Route: 042
     Dates: start: 20240301, end: 20240301
  64. AMINO ACIDS, SOURCE UNSPECIFIED [Concomitant]
     Active Substance: AMINO ACIDS, SOURCE UNSPECIFIED
     Route: 042
     Dates: start: 20230921, end: 20230928
  65. AMINO ACIDS, SOURCE UNSPECIFIED [Concomitant]
     Active Substance: AMINO ACIDS, SOURCE UNSPECIFIED
     Route: 042
     Dates: start: 20230623, end: 20230626
  66. AMINO ACIDS, SOURCE UNSPECIFIED [Concomitant]
     Active Substance: AMINO ACIDS, SOURCE UNSPECIFIED
     Route: 042
     Dates: start: 20231217, end: 20231217
  67. AMINO ACIDS, SOURCE UNSPECIFIED [Concomitant]
     Active Substance: AMINO ACIDS, SOURCE UNSPECIFIED
     Route: 042
     Dates: start: 20231219, end: 20231219
  68. AMINO ACIDS, SOURCE UNSPECIFIED [Concomitant]
     Active Substance: AMINO ACIDS, SOURCE UNSPECIFIED
     Route: 042
     Dates: start: 20240301, end: 20240301
  69. calcium carbonate tablets (Chemistry) [Concomitant]
     Route: 048
     Dates: start: 20230624, end: 20230627
  70. LEUCOGEN [Concomitant]
     Active Substance: LEUCOGEN
     Indication: Leukopenia
     Route: 048
     Dates: start: 20230620, end: 20230627
  71. LEUCOGEN [Concomitant]
     Active Substance: LEUCOGEN
     Route: 048
     Dates: start: 20231031, end: 20231201
  72. LEUCOGEN [Concomitant]
     Active Substance: LEUCOGEN
     Route: 048
     Dates: start: 20240110, end: 20240112
  73. SODIUM CHLORIDE [Concomitant]
     Active Substance: SODIUM CHLORIDE
     Route: 042
     Dates: start: 20230623, end: 20230623
  74. ESOMEPRAZOLE SODIUM [Concomitant]
     Active Substance: ESOMEPRAZOLE SODIUM
     Route: 042
     Dates: start: 20231216, end: 20231219
  75. ESOMEPRAZOLE SODIUM [Concomitant]
     Active Substance: ESOMEPRAZOLE SODIUM
     Route: 042
     Dates: start: 20231125, end: 20231126
  76. ESOMEPRAZOLE SODIUM [Concomitant]
     Active Substance: ESOMEPRAZOLE SODIUM
     Route: 042
     Dates: start: 20240110, end: 20240112
  77. ESOMEPRAZOLE SODIUM [Concomitant]
     Active Substance: ESOMEPRAZOLE SODIUM
     Route: 042
     Dates: start: 20240206, end: 20240207
  78. MAGNESIUM ISOGLYCYRRHIZINATE [Concomitant]
     Active Substance: MAGNESIUM ISOGLYCYRRHIZINATE
     Indication: Hepatic function abnormal
     Route: 042
     Dates: start: 20231125, end: 20231126
  79. MAGNESIUM ISOGLYCYRRHIZINATE [Concomitant]
     Active Substance: MAGNESIUM ISOGLYCYRRHIZINATE
     Route: 042
     Dates: start: 20231225, end: 20231225
  80. MAGNESIUM ISOGLYCYRRHIZINATE [Concomitant]
     Active Substance: MAGNESIUM ISOGLYCYRRHIZINATE
     Route: 042
     Dates: start: 20231216, end: 20231219
  81. MAGNESIUM ISOGLYCYRRHIZINATE [Concomitant]
     Active Substance: MAGNESIUM ISOGLYCYRRHIZINATE
     Route: 042
     Dates: start: 20240110, end: 20240112
  82. MAGNESIUM ISOGLYCYRRHIZINATE [Concomitant]
     Active Substance: MAGNESIUM ISOGLYCYRRHIZINATE
     Route: 042
     Dates: start: 20240206, end: 20240207
  83. MAGNESIUM ISOGLYCYRRHIZINATE [Concomitant]
     Active Substance: MAGNESIUM ISOGLYCYRRHIZINATE
     Route: 042
     Dates: start: 20231218, end: 20231219
  84. TROPISETRON HYDROCHLORIDE [Concomitant]
     Active Substance: TROPISETRON HYDROCHLORIDE
     Route: 042
     Dates: start: 20240110, end: 20240112
  85. TROPISETRON HYDROCHLORIDE [Concomitant]
     Active Substance: TROPISETRON HYDROCHLORIDE
     Route: 042
     Dates: start: 20231216, end: 20231219
  86. TROPISETRON HYDROCHLORIDE [Concomitant]
     Active Substance: TROPISETRON HYDROCHLORIDE
     Route: 042
     Dates: start: 20240206, end: 20240207
  87. TROPISETRON HYDROCHLORIDE [Concomitant]
     Active Substance: TROPISETRON HYDROCHLORIDE
     Route: 042
     Dates: start: 20231125, end: 20231125
  88. TROPISETRON HYDROCHLORIDE [Concomitant]
     Active Substance: TROPISETRON HYDROCHLORIDE
     Route: 042
     Dates: start: 20231126, end: 20231126
  89. FAT EMULSION NOS [Concomitant]
     Active Substance: EGG PHOSPHOLIPIDS\SAFFLOWER OIL\SOYBEAN OIL
     Route: 042
     Dates: start: 20240302, end: 20240302
  90. CAPECITABINE [Concomitant]
     Active Substance: CAPECITABINE
     Indication: Chemotherapy
     Route: 048
     Dates: start: 20231121, end: 202311
  91. CAPECITABINE [Concomitant]
     Active Substance: CAPECITABINE
     Route: 048
     Dates: start: 20231010, end: 202310
  92. CAPECITABINE [Concomitant]
     Active Substance: CAPECITABINE
     Route: 048
     Dates: start: 20231031
  93. CAPECITABINE [Concomitant]
     Active Substance: CAPECITABINE
     Route: 048
     Dates: start: 20231107, end: 202312
  94. THYMALFASIN [Concomitant]
     Active Substance: THYMALFASIN
     Route: 058
     Dates: start: 20240303, end: 20240305

REACTIONS (7)
  - Arrhythmia [Not Recovered/Not Resolved]
  - Venous thrombosis [Not Recovered/Not Resolved]
  - Coagulation factor deficiency [Recovered/Resolved]
  - Cough [Recovered/Resolved]
  - Toothache [Recovered/Resolved]
  - Anaemia [Not Recovered/Not Resolved]
  - Leukopenia [Recovered/Resolved]

NARRATIVE: CASE EVENT DATE: 20231215
